FAERS Safety Report 21487010 (Version 2)
Quarter: 2022Q4

REPORT INFORMATION
  Report Type: Spontaneous
  Country: US (occurrence: US)
  Receive Date: 20221020
  Receipt Date: 20221107
  Transmission Date: 20230113
  Serious: Yes (Other)
  Sender: FDA-Public Use
  Company Number: US-TEVA-2022-US-2816646

PATIENT
  Age: 60 Year
  Sex: Male

DRUGS (15)
  1. PREDNISONE [Suspect]
     Active Substance: PREDNISONE
     Indication: Autoinflammatory disease
     Dosage: AVERAGE DOSAGE 20 MG/DAY
     Route: 048
  2. AMIKACIN [Suspect]
     Active Substance: AMIKACIN
     Indication: Mycobacterium chelonae infection
     Route: 065
  3. ANAKINRA [Suspect]
     Active Substance: ANAKINRA
     Indication: Autoinflammatory disease
     Dosage: 100 MILLIGRAM DAILY;
     Route: 058
  4. INFLIXIMAB [Suspect]
     Active Substance: INFLIXIMAB
     Indication: Autoinflammatory disease
     Dosage: WEEK 0,2,6
     Route: 042
  5. INFLIXIMAB [Suspect]
     Active Substance: INFLIXIMAB
     Dosage: TOTAL 3 MONTHS
     Route: 042
  6. ADALIMUMAB [Suspect]
     Active Substance: ADALIMUMAB
     Indication: Autoinflammatory disease
     Route: 058
  7. SECUKINUMAB [Suspect]
     Active Substance: SECUKINUMAB
     Indication: Autoinflammatory disease
     Dosage: 150 MG WEEKLY X 4
     Route: 058
  8. SECUKINUMAB [Suspect]
     Active Substance: SECUKINUMAB
     Dosage: TOTAL 3 MONTHS
     Route: 058
  9. RITUXIMAB [Suspect]
     Active Substance: RITUXIMAB
     Indication: Autoinflammatory disease
     Dosage: 1000 MG X 2, INTRAVENOUSLY SEPARATED BY 14 DAYS
     Route: 042
  10. RILONACEPT [Concomitant]
     Active Substance: RILONACEPT
     Indication: Autoinflammatory disease
     Dosage: 320 MILLIGRAM DAILY;
     Route: 058
  11. RILONACEPT [Concomitant]
     Active Substance: RILONACEPT
     Dosage: TOTAL 3 MONTHS
     Route: 058
  12. CANAKINUMAB [Concomitant]
     Active Substance: CANAKINUMAB
     Indication: Autoinflammatory disease
     Route: 058
  13. CANAKINUMAB [Concomitant]
     Active Substance: CANAKINUMAB
     Route: 058
  14. TOCILIZUMAB [Concomitant]
     Active Substance: TOCILIZUMAB
     Indication: Autoinflammatory disease
     Route: 042
  15. TOFACITINIB [Concomitant]
     Active Substance: TOFACITINIB
     Indication: Autoinflammatory disease
     Dosage: 11 MILLIGRAM DAILY;
     Route: 048

REACTIONS (6)
  - Type 2 diabetes mellitus [Unknown]
  - Cataract [Unknown]
  - Mycobacterium chelonae infection [Unknown]
  - Deafness neurosensory [Unknown]
  - Skin reaction [Unknown]
  - Therapy non-responder [Unknown]
